FAERS Safety Report 15226329 (Version 3)
Quarter: 2021Q3

REPORT INFORMATION
  Report Type: Spontaneous
  Country: AT (occurrence: AT)
  Receive Date: 20180801
  Receipt Date: 20210802
  Transmission Date: 20211014
  Serious: Yes (Other)
  Sender: FDA-Public Use
  Company Number: AT-BAUSCH-BL-2018-020200

PATIENT
  Sex: Male

DRUGS (17)
  1. CYTARABIN ACCORD [Suspect]
     Active Substance: CYTARABINE
     Indication: ACUTE LYMPHOCYTIC LEUKAEMIA
     Route: 065
     Dates: start: 20170425, end: 20170516
  2. VINCRISTINE PFIZER [Suspect]
     Active Substance: VINCRISTINE
     Indication: ACUTE LYMPHOCYTIC LEUKAEMIA
     Route: 065
     Dates: start: 20170425, end: 20170516
  3. 6?MERCAPTOPURINE MONOHYDRATE [Suspect]
     Active Substance: MERCAPTOPURINE
     Indication: ACUTE LYMPHOCYTIC LEUKAEMIA
     Route: 065
     Dates: start: 20170425, end: 20170516
  4. METHOTREXAT GRY [Suspect]
     Active Substance: METHOTREXATE SODIUM
     Route: 065
     Dates: start: 20170517, end: 20170618
  5. PREDNISOLONE. [Suspect]
     Active Substance: PREDNISOLONE
     Indication: ACUTE LYMPHOCYTIC LEUKAEMIA
     Route: 065
     Dates: start: 20170425, end: 20170516
  6. ONCASPAR [Suspect]
     Active Substance: PEGASPARGASE
     Indication: ACUTE LYMPHOCYTIC LEUKAEMIA
     Route: 065
     Dates: start: 20170425, end: 20170516
  7. VORICONAZOLE. [Suspect]
     Active Substance: VORICONAZOLE
     Indication: PRODUCT USED FOR UNKNOWN INDICATION
     Route: 065
  8. 6?MERCAPTOPURINE MONOHYDRATE [Suspect]
     Active Substance: MERCAPTOPURINE
     Route: 065
     Dates: start: 20170517, end: 20170619
  9. METHOTREXAT GRY [Suspect]
     Active Substance: METHOTREXATE SODIUM
     Indication: ACUTE LYMPHOCYTIC LEUKAEMIA
     Route: 065
     Dates: start: 20170425, end: 20170516
  10. CYCLOPHOSPHAMIDE SANDOZ [Suspect]
     Active Substance: CYCLOPHOSPHAMIDE
     Route: 065
     Dates: start: 20170517, end: 20170618
  11. DEXAMETHASONE. [Suspect]
     Active Substance: DEXAMETHASONE
     Indication: ACUTE LYMPHOCYTIC LEUKAEMIA
     Route: 065
     Dates: start: 20170517, end: 20170618
  12. CARVEDILOL. [Concomitant]
     Active Substance: CARVEDILOL
     Indication: CARDIAC DISORDER
     Route: 065
  13. CYTARABIN ACCORD [Suspect]
     Active Substance: CYTARABINE
     Route: 065
     Dates: start: 20170517, end: 20170618
  14. CYCLOPHOSPHAMIDE SANDOZ [Suspect]
     Active Substance: CYCLOPHOSPHAMIDE
     Indication: ACUTE LYMPHOCYTIC LEUKAEMIA
     Route: 065
     Dates: start: 20170425, end: 20170516
  15. VINCRISTINE PFIZER [Suspect]
     Active Substance: VINCRISTINE
     Route: 065
     Dates: start: 20171002
  16. PONATINIB [Suspect]
     Active Substance: PONATINIB
     Indication: ACUTE LYMPHOCYTIC LEUKAEMIA
     Route: 065
     Dates: start: 20161013, end: 20170622
  17. LISINOPRIL. [Concomitant]
     Active Substance: LISINOPRIL
     Indication: HYPERTENSION
     Route: 065

REACTIONS (13)
  - Abdominal pain [Recovered/Resolved]
  - Febrile neutropenia [Unknown]
  - Anaphylactic reaction [Unknown]
  - Cytokine release syndrome [Unknown]
  - Gallbladder oedema [Recovered/Resolved]
  - Hepatic steatosis [Recovered/Resolved]
  - Ascites [Recovered/Resolved]
  - Bradycardia [Unknown]
  - Respiratory distress [Unknown]
  - Angioedema [Unknown]
  - Staphylococcal sepsis [Unknown]
  - Pericardial effusion [Unknown]
  - Gastrointestinal wall thickening [Recovered/Resolved]

NARRATIVE: CASE EVENT DATE: 20170606
